FAERS Safety Report 5946917-8 (Version None)
Quarter: 2008Q4

REPORT INFORMATION
  Report Type: 
  Country: None (occurrence: None)
  Receive Date: 20081107
  Receipt Date: 20081107
  Transmission Date: 20090506
  Serious: Yes (Hospitalization)
  Sender: FDA-Public Use
  Company Number: None

PATIENT
  Age: 83 Year
  Sex: Female
  Weight: 63 kg

DRUGS (2)
  1. XANAX [Suspect]
     Indication: ANXIETY
     Dosage: 0.25 MG TWICE DAILY PO
     Route: 048
     Dates: start: 20080810, end: 20080813
  2. ATIVAN [Suspect]
     Indication: ANXIETY
     Dosage: 0.5 MG EVERY 6 HOURS PRN PO
     Route: 048
     Dates: start: 20080814, end: 20080814

REACTIONS (5)
  - AGGRESSION [None]
  - DELIRIUM [None]
  - HALLUCINATION [None]
  - HYDROCEPHALUS [None]
  - MENTAL STATUS CHANGES [None]
